FAERS Safety Report 5017588-2 (Version None)
Quarter: 2006Q2

REPORT INFORMATION
  Report Type: 
  Country: None (occurrence: None)
  Receive Date: 20060601
  Receipt Date: 20060601
  Transmission Date: 20061013
  Serious: Yes (Life-Threatening, Hospitalization)
  Sender: FDA-Public Use
  Company Number: None

PATIENT
  Sex: Female
  Weight: 61.14 kg

DRUGS (11)
  1. GLEEVEC [Suspect]
     Indication: BREAST CANCER METASTATIC
     Dosage: 400 MG ONCE DAILY PO
     Route: 048
     Dates: start: 20060414, end: 20060519
  2. TAXOTERE [Suspect]
     Indication: BREAST CANCER METASTATIC
     Dosage: 30MG/M2  3 DAYS/MONTH IV
     Route: 042
     Dates: start: 20060406, end: 20060510
  3. GLYBURIDE AND METFORMIN HCL [Concomitant]
  4. ALTOPREV [Concomitant]
  5. LORAZEPAM [Concomitant]
  6. PROCHLORPERAZINE [Concomitant]
  7. DEXAMETHASONE TAB [Concomitant]
  8. CATAPRES [Concomitant]
  9. ASPIRIN [Concomitant]
  10. TYL WITH COD #3 [Concomitant]
  11. LEVAQUIN [Concomitant]

REACTIONS (4)
  - DIARRHOEA [None]
  - FATIGUE [None]
  - PLEURITIC PAIN [None]
  - PNEUMONIA [None]
